FAERS Safety Report 14155923 (Version 2)
Quarter: 2019Q2

REPORT INFORMATION
  Report Type: Spontaneous
  Country: FR (occurrence: FR)
  Receive Date: 20171103
  Receipt Date: 20190409
  Transmission Date: 20190711
  Serious: Yes (Death, Other)
  Sender: FDA-Public Use
  Company Number: FR-VELOXIS PHARMACEUTICALS-2033131

PATIENT
  Age: 73 Year
  Sex: Male

DRUGS (3)
  1. EVEROLIMUS. [Suspect]
     Active Substance: EVEROLIMUS
     Indication: IMMUNOSUPPRESSANT DRUG THERAPY
     Dosage: 2.5 MG, QD
     Route: 065
  2. ENVARSUS XR [Suspect]
     Active Substance: TACROLIMUS
     Indication: IMMUNOSUPPRESSANT DRUG THERAPY
  3. NIVOLUMAB [Suspect]
     Active Substance: NIVOLUMAB
     Indication: SUPERFICIAL SPREADING MELANOMA STAGE UNSPECIFIED
     Dosage: 3 MG/KG AT 30 DAYS INTERVAL
     Route: 065

REACTIONS (3)
  - Thrombocytopenia [Recovered/Resolved]
  - Superficial spreading melanoma stage unspecified [Fatal]
  - Coombs positive haemolytic anaemia [Unknown]
